FAERS Safety Report 13590598 (Version 3)
Quarter: 2017Q3

REPORT INFORMATION
  Report Type: Spontaneous
  Country: JP (occurrence: JP)
  Receive Date: 20170530
  Receipt Date: 20170712
  Transmission Date: 20171127
  Serious: Yes (Other)
  Sender: FDA-Public Use
  Company Number: JP-PFIZER INC-2017234306

PATIENT
  Age: 42 Year
  Sex: Male

DRUGS (2)
  1. BANAN [Suspect]
     Active Substance: CEFPODOXIME PROXETIL
     Dosage: UNK
     Route: 065
     Dates: start: 201509, end: 201509
  2. LOXONIN [Suspect]
     Active Substance: LOXOPROFEN SODIUM
     Dosage: UNK
     Route: 065
     Dates: start: 201509, end: 201509

REACTIONS (1)
  - Stevens-Johnson syndrome [Unknown]
